FAERS Safety Report 4576734-5 (Version None)
Quarter: 2005Q1

REPORT INFORMATION
  Report Type: 
  Country: None (occurrence: None)
  Receive Date: 20050207
  Receipt Date: 20050131
  Transmission Date: 20050727
  Serious: Yes (Hospitalization)
  Sender: FDA-Public Use
  Company Number: 163-20785-05010068

PATIENT
  Age: 31 Year
  Sex: Male

DRUGS (1)
  1. THALOMID [Suspect]
     Indication: MEDULLOBLASTOMA
     Dosage: 100 MG, DAILY, ORAL
     Route: 048
     Dates: start: 20041019, end: 20050114

REACTIONS (11)
  - APHASIA [None]
  - COMA [None]
  - CONFUSIONAL STATE [None]
  - CONVULSION [None]
  - GAIT DISTURBANCE [None]
  - HEADACHE [None]
  - HYPOACUSIS [None]
  - MENTAL STATUS CHANGES [None]
  - MUSCLE SPASMS [None]
  - TREMOR [None]
  - VISUAL DISTURBANCE [None]
